FAERS Safety Report 14535591 (Version 1)
Quarter: 2018Q1

REPORT INFORMATION
  Report Type: Spontaneous
  Country: UY (occurrence: UY)
  Receive Date: 20180215
  Receipt Date: 20180215
  Transmission Date: 20180509
  Serious: Yes (Other)
  Sender: FDA-Public Use
  Company Number: PHHY2018UY023470

PATIENT
  Age: 81 Year
  Sex: Male

DRUGS (1)
  1. VITALUX [Suspect]
     Active Substance: MINERALS\VITAMINS
     Indication: PREOPERATIVE CARE
     Dosage: 1 DF, QD
     Route: 065

REACTIONS (1)
  - Maculopathy [Unknown]
